FAERS Safety Report 17744022 (Version 2)
Quarter: 2020Q2

REPORT INFORMATION
  Report Type: Report from Study
  Country: CN (occurrence: CN)
  Receive Date: 20200505
  Receipt Date: 20200528
  Transmission Date: 20200714
  Serious: Yes (Hospitalization)
  Sender: FDA-Public Use
  Company Number: CN-TAKEDA-2020TUS018191

PATIENT
  Age: 25 Year
  Sex: Female
  Weight: 75 kg

DRUGS (16)
  1. VORTIOXETINE. [Suspect]
     Active Substance: VORTIOXETINE
     Dosage: 15 MILLIGRAM, QD
     Route: 048
     Dates: start: 20200321
  2. LORAZEPAM. [Concomitant]
     Active Substance: LORAZEPAM
     Indication: AFFECTIVE DISORDER
     Dosage: UNK
     Route: 048
     Dates: start: 20200321
  3. DEXAMETHASONE SODIUM PHOSPHATE. [Concomitant]
     Active Substance: DEXAMETHASONE SODIUM PHOSPHATE
     Dosage: UNK, QD
     Route: 042
     Dates: start: 20200411, end: 20200413
  4. LORAZEPAM. [Concomitant]
     Active Substance: LORAZEPAM
     Indication: POOR QUALITY SLEEP
  5. QUETIAPINE FUMARATE. [Concomitant]
     Active Substance: QUETIAPINE FUMARATE
     Indication: AFFECTIVE DISORDER
     Dosage: UNK
     Route: 048
     Dates: start: 20200321
  6. QUETIAPINE FUMARATE. [Concomitant]
     Active Substance: QUETIAPINE FUMARATE
     Indication: POOR QUALITY SLEEP
  7. MANNITOL. [Concomitant]
     Active Substance: MANNITOL
     Indication: POLYURIA
     Dosage: UNK, QD
     Route: 042
     Dates: start: 20200405, end: 20200410
  8. DEXAMETHASONE SODIUM PHOSPHATE. [Concomitant]
     Active Substance: DEXAMETHASONE SODIUM PHOSPHATE
     Indication: VOMITING
     Dosage: UNK, QD
     Route: 042
     Dates: start: 20200406, end: 20200408
  9. GARCINIA CAMBOGIA                  /08679801/ [Concomitant]
     Active Substance: HERBALS\GARCINIA CAMBOGIA FRUIT
     Indication: ANALGESIC THERAPY
     Dosage: UNK, QD
     Route: 048
     Dates: start: 20200405, end: 20200405
  10. MANNITOL. [Concomitant]
     Active Substance: MANNITOL
     Dosage: UNK, QD
     Route: 042
     Dates: start: 20200411, end: 20200414
  11. METHYLCOBALAMIN. [Concomitant]
     Active Substance: METHYLCOBALAMIN
     Indication: NERVOUS SYSTEM DISORDER
     Dosage: UNK, QD
     Route: 048
     Dates: start: 20200405, end: 20200405
  12. GARCINIA CAMBOGIA                  /08679801/ [Concomitant]
     Active Substance: HERBALS\GARCINIA CAMBOGIA FRUIT
     Dosage: UNK, QD
     Route: 048
     Dates: start: 20200413, end: 20200413
  13. SODIUM LACTATE COMPOUND [Concomitant]
     Active Substance: CALCIUM CHLORIDE\POTASSIUM CHLORIDE\SODIUM CHLORIDE\SODIUM LACTATE
     Indication: ACID BASE BALANCE
     Dosage: UNK, QD
     Route: 030
     Dates: start: 20200410, end: 20200410
  14. GLYCEROL [Concomitant]
     Active Substance: GLYCERIN
     Indication: SPINAL CORD DISORDER
     Dosage: UNK
     Route: 042
     Dates: start: 20200405, end: 20200410
  15. VORTIOXETINE. [Suspect]
     Active Substance: VORTIOXETINE
     Indication: MAJOR DEPRESSION
     Dosage: 10 MILLIGRAM, QD
     Route: 048
     Dates: start: 20191212, end: 20200320
  16. GLYCEROL [Concomitant]
     Active Substance: GLYCERIN
     Dosage: UNK
     Route: 042
     Dates: start: 20200411, end: 20200414

REACTIONS (2)
  - Intervertebral disc protrusion [Recovered/Resolved]
  - Off label use [Recovered/Resolved]

NARRATIVE: CASE EVENT DATE: 20200321
